FAERS Safety Report 6216866-9 (Version None)
Quarter: 2009Q2

REPORT INFORMATION
  Report Type: 
  Country: None (occurrence: None)
  Receive Date: 20090605
  Receipt Date: 20090605
  Transmission Date: 20091009
  Serious: Yes (Hospitalization)
  Sender: FDA-Public Use
  Company Number: FR-ABBOTT-08P-056-0490030-00

PATIENT
  Sex: Female

DRUGS (2)
  1. TARKA [Suspect]
     Indication: HYPERTENSION
     Route: 048
     Dates: start: 20081021, end: 20081029
  2. ACEBUTOLOL [Suspect]
     Indication: DRUG USE FOR UNKNOWN INDICATION
     Route: 048
     Dates: end: 20081029

REACTIONS (8)
  - ATRIOVENTRICULAR BLOCK [None]
  - BRADYCARDIA [None]
  - DRUG ADMINISTRATION ERROR [None]
  - HYPOTENSION [None]
  - HYPOTHERMIA [None]
  - MALAISE [None]
  - PALLOR [None]
  - TACHYPNOEA [None]
